FAERS Safety Report 17086840 (Version 4)
Quarter: 2020Q2

REPORT INFORMATION
  Report Type: Report from Study
  Country: None (occurrence: BE)
  Receive Date: 20191128
  Receipt Date: 20200402
  Transmission Date: 20200713
  Serious: Yes (Hospitalization)
  Sender: FDA-Public Use
  Company Number: BE-ABBVIE-19K-013-2895575-00

PATIENT
  Sex: Female
  Weight: 55 kg

DRUGS (11)
  1. DUODOPA [Suspect]
     Active Substance: CARBIDOPA\LEVODOPA
     Dosage: MD=8ML, CD=4.6ML/HR DURING 16HRS, ED=3ML
     Route: 050
     Dates: start: 20180424, end: 20180822
  2. DUODOPA [Suspect]
     Active Substance: CARBIDOPA\LEVODOPA
     Dosage: DOSES CONTINUOUSLY MONITORED AND ADAPTED
     Route: 050
     Dates: start: 20180822, end: 20190604
  3. DUODOPA [Suspect]
     Active Substance: CARBIDOPA\LEVODOPA
     Indication: PARKINSON^S DISEASE
     Dosage: UNKNOWN DOSAGES
     Route: 050
     Dates: start: 20180423, end: 20180424
  4. DUODOPA [Suspect]
     Active Substance: CARBIDOPA\LEVODOPA
     Dosage: MD=6.5ML, CD=3.3ML/HR DURING 16HRS, ED=1.5ML
     Route: 050
     Dates: start: 20191114, end: 20191114
  5. DUODOPA [Suspect]
     Active Substance: CARBIDOPA\LEVODOPA
     Dosage: MD=5.5ML, CD=3.4ML/HR DURING 16HRS, ED=2.5ML
     Route: 050
     Dates: start: 20191122, end: 20191122
  6. DUODOPA [Suspect]
     Active Substance: CARBIDOPA\LEVODOPA
     Dosage: MD=6.5ML, CD=3.1ML/HR DURING 16HRS, ED=1.5ML
     Route: 050
     Dates: start: 20190917, end: 20191114
  7. DUODOPA [Suspect]
     Active Substance: CARBIDOPA\LEVODOPA
     Dosage: MD=6ML, CD=3.5ML/HR DURING 16HRS, ED=2.5ML
     Route: 050
     Dates: start: 20191122
  8. DUODOPA [Suspect]
     Active Substance: CARBIDOPA\LEVODOPA
     Dosage: MD=7.5ML, CD=3.2ML/HR DURING 16HRS, ED=2.2ML
     Route: 050
     Dates: start: 20190604, end: 20190826
  9. DUODOPA [Suspect]
     Active Substance: CARBIDOPA\LEVODOPA
     Route: 050
     Dates: start: 20190829, end: 20190917
  10. DUODOPA [Suspect]
     Active Substance: CARBIDOPA\LEVODOPA
     Dosage: DOSES CONTINUOUSLY MONITORED AND ADAPTED
     Route: 050
     Dates: start: 20190826, end: 201908
  11. DUODOPA [Suspect]
     Active Substance: CARBIDOPA\LEVODOPA
     Dosage: MD=5.5ML, CD=3.4ML/HR DURING 16HRS, ED=2.2ML
     Route: 050
     Dates: start: 20191114, end: 20191122

REACTIONS (12)
  - Fungal infection [Recovered/Resolved]
  - Stoma site infection [Unknown]
  - Hip fracture [Recovering/Resolving]
  - Stoma site hypergranulation [Recovering/Resolving]
  - Confusional state [Unknown]
  - Reduced facial expression [Unknown]
  - Hallucination [Unknown]
  - Bacterial infection [Recovered/Resolved]
  - Stoma site erythema [Not Recovered/Not Resolved]
  - Stoma site discharge [Unknown]
  - Fall [Recovered/Resolved]
  - Dyskinesia [Unknown]

NARRATIVE: CASE EVENT DATE: 2019
